FAERS Safety Report 8454205-3 (Version None)
Quarter: 2012Q2

REPORT INFORMATION
  Report Type: 
  Country: None (occurrence: None)
  Receive Date: 20120620
  Receipt Date: 20120612
  Transmission Date: 20120825
  Serious: Yes (Other)
  Sender: FDA-Public Use
  Company Number: AU-ROCHE-1079445

PATIENT
  Sex: Female

DRUGS (1)
  1. ACTEMRA [Suspect]
     Indication: RHEUMATOID ARTHRITIS
     Dosage: VOLUME OF INFUSION GIVEN: 26ML
     Route: 065
     Dates: start: 20120330

REACTIONS (2)
  - HIP FRACTURE [None]
  - MALAISE [None]
